FAERS Safety Report 11788058 (Version 1)
Quarter: 2015Q4

REPORT INFORMATION
  Report Type: Spontaneous
  Country: US (occurrence: US)
  Receive Date: 20151130
  Receipt Date: 20151130
  Transmission Date: 20160305
  Serious: No
  Sender: FDA-Public Use
  Company Number: US-HOSPIRA-2925021

PATIENT
  Age: 24 Year
  Sex: Female
  Weight: 75.45 kg

DRUGS (1)
  1. BUPIVACAINE HYDROCHLORIDE. [Suspect]
     Active Substance: BUPIVACAINE HYDROCHLORIDE
     Indication: CERVIX CERCLAGE PROCEDURE
     Dosage: ONCE
     Route: 065
     Dates: start: 20150616

REACTIONS (2)
  - Drug ineffective [Recovered/Resolved]
  - Exposure during pregnancy [Unknown]

NARRATIVE: CASE EVENT DATE: 20150616
